FAERS Safety Report 10092214 (Version 1)
Quarter: 2014Q2

REPORT INFORMATION
  Report Type: Spontaneous
  Country: US (occurrence: US)
  Receive Date: 20140421
  Receipt Date: 20140421
  Transmission Date: 20141212
  Serious: No
  Sender: FDA-Public Use
  Company Number: US-SANOFI-AVENTIS-2013SA042840

PATIENT
  Sex: Female

DRUGS (5)
  1. ALLEGRA [Suspect]
     Indication: RESPIRATORY TRACT CONGESTION
     Route: 065
  2. ALLEGRA [Suspect]
     Indication: RESPIRATORY TRACT CONGESTION
     Route: 065
  3. ALLEGRA-D, 12 HR [Suspect]
     Indication: RESPIRATORY TRACT CONGESTION
     Route: 065
  4. ALLEGRA-D, 12 HR [Suspect]
     Indication: RESPIRATORY TRACT CONGESTION
     Route: 065
  5. CLARITIN-D [Concomitant]

REACTIONS (1)
  - Respiratory tract congestion [Unknown]
